FAERS Safety Report 8932913 (Version 2)
Quarter: 2012Q4

REPORT INFORMATION
  Report Type: Report from Study
  Country: SK (occurrence: SK)
  Receive Date: 20121129
  Receipt Date: 20121212
  Transmission Date: 20130627
  Serious: Yes (Death)
  Sender: FDA-Public Use
  Company Number: PHHY2012SK108830

PATIENT
  Age: 68 Year
  Sex: Male
  Weight: 75 kg

DRUGS (9)
  1. INDACATEROL [Suspect]
     Indication: CHRONIC OBSTRUCTIVE PULMONARY DISEASE
     Dosage: UNK
     Dates: start: 20120213
  2. TRITACE [Concomitant]
     Indication: HYPERTENSION
     Dosage: 1.25 mg, QD
  3. TALLITON [Concomitant]
     Indication: MYOCARDIAL ISCHAEMIA
     Dosage: 1.25 mg, BID
  4. FURON [Concomitant]
     Indication: MYOCARDIAL ISCHAEMIA
     Dosage: 40 mg, QD
  5. FURON [Concomitant]
     Indication: MYOCARDIAL ISCHAEMIA
  6. INSPRA [Concomitant]
     Indication: MYOCARDIAL ISCHAEMIA
     Dosage: 25 mg, QD
  7. DIAPREL MR [Concomitant]
     Indication: DIABETES MELLITUS
     Dosage: 60 mg, BID
  8. WARFARIN [Concomitant]
     Indication: MYOCARDIAL ISCHAEMIA
     Dosage: 2.5 mg, QD
  9. TAMSULOSIN [Concomitant]
     Indication: HYPERTROPHY
     Dosage: 0.4 mg, QD

REACTIONS (1)
  - Myocardial ischaemia [Fatal]
